FAERS Safety Report 4396695-1 (Version None)
Quarter: 2004Q3

REPORT INFORMATION
  Report Type: 
  Country: None (occurrence: None)
  Receive Date: 20040709
  Receipt Date: 20040625
  Transmission Date: 20050211
  Serious: Yes (Death)
  Sender: FDA-Public Use
  Company Number: 2004IM000123

PATIENT
  Age: 41 Year
  Sex: Male

DRUGS (2)
  1. ADVAFERON (A643_INTERFERON ALFACON-1) [Suspect]
     Indication: HEPATITIS CHRONIC ACTIVE
     Dosage: 18 MU; QWD; SUBCUTANEOUS
     Route: 058
     Dates: start: 20011229, end: 20020218
  2. DICLOFENAC SODIUM [Concomitant]

REACTIONS (8)
  - COMPLETED SUICIDE [None]
  - DEPRESSED MOOD [None]
  - LACERATION [None]
  - MALAISE [None]
  - NASOPHARYNGITIS [None]
  - PYREXIA [None]
  - RASH GENERALISED [None]
  - RASH PRURITIC [None]
